FAERS Safety Report 7130678-3 (Version None)
Quarter: 2010Q4

REPORT INFORMATION
  Report Type: 
  Country: None (occurrence: None)
  Receive Date: 20101201
  Receipt Date: 20101124
  Transmission Date: 20110411
  Serious: Yes (Death, Hospitalization, Other)
  Sender: FDA-Public Use
  Company Number: CA-ELI_LILLY_AND_COMPANY-CA201010004955

PATIENT
  Age: 25 Year
  Sex: Female
  Weight: 29.478 kg

DRUGS (5)
  1. ADCIRCA [Suspect]
     Indication: PULMONARY ARTERIAL HYPERTENSION
     Dosage: 20 MG, 2/D
     Route: 048
     Dates: start: 20100923, end: 20101009
  2. BOSENTAN [Concomitant]
     Indication: PULMONARY HYPERTENSION
  3. DIGOXIN [Concomitant]
  4. LASIX [Concomitant]
  5. TRANEXAMIC ACID [Concomitant]
     Indication: PULMONARY ARTERIAL HYPERTENSION

REACTIONS (1)
  - RESPIRATORY FAILURE [None]
